FAERS Safety Report 6824014-7 (Version None)
Quarter: 2010Q3

REPORT INFORMATION
  Report Type: 
  Country: None (occurrence: None)
  Receive Date: 20100708
  Receipt Date: 20070306
  Transmission Date: 20110219
  Serious: No
  Sender: FDA-Public Use
  Company Number: US-PFIZER INC-2006113556

PATIENT
  Age: 70 Year
  Sex: Male

DRUGS (5)
  1. CHANTIX [Suspect]
     Indication: TOBACCO USER
     Dates: start: 20060823
  2. CHANTIX [Suspect]
     Indication: EMPHYSEMA
  3. ALBUTEROL [Concomitant]
  4. ATROVENT [Concomitant]
  5. PERCOCET [Concomitant]

REACTIONS (2)
  - DECREASED APPETITE [None]
  - WEIGHT DECREASED [None]
